FAERS Safety Report 14752708 (Version 1)
Quarter: 2018Q2

REPORT INFORMATION
  Report Type: Report from Study
  Country: ES (occurrence: ES)
  Receive Date: 20180412
  Receipt Date: 20180412
  Transmission Date: 20180711
  Serious: Yes (Other)
  Sender: FDA-Public Use
  Company Number: ES-JNJFOC-20180409953

PATIENT
  Age: 42 Year
  Sex: Female
  Weight: 68.7 kg

DRUGS (19)
  1. RISPERDAL [Suspect]
     Active Substance: RISPERIDONE
     Indication: BIPOLAR DISORDER
     Dosage: DOSE: 1/2-0-1
     Route: 048
     Dates: start: 20160627, end: 20160901
  2. VENLAFAXINA [Interacting]
     Active Substance: VENLAFAXINE HYDROCHLORIDE
     Indication: BIPOLAR DISORDER
     Route: 048
  3. QUETIAPINA [Interacting]
     Active Substance: QUETIAPINE
     Indication: BIPOLAR DISORDER
     Dosage: DOSE:0-0-1
     Route: 048
     Dates: start: 20160626, end: 20160627
  4. RISPERDAL [Suspect]
     Active Substance: RISPERIDONE
     Indication: PSYCHOTIC DISORDER
     Dosage: DOSE: 1/2-1/2-1
     Route: 048
     Dates: start: 20160626, end: 20160627
  5. RISPERDAL [Suspect]
     Active Substance: RISPERIDONE
     Indication: BIPOLAR DISORDER
     Dosage: DOSE: 0-0-1
     Route: 048
     Dates: start: 20160901
  6. QUETIAPINA [Interacting]
     Active Substance: QUETIAPINE
     Indication: PSYCHOTIC DISORDER
     Dosage: DOSE:0-0-1
     Route: 048
     Dates: start: 20160626, end: 20160627
  7. RISPERDAL [Suspect]
     Active Substance: RISPERIDONE
     Indication: PSYCHOTIC DISORDER
     Dosage: DOSE: 1/2-0-1
     Route: 048
     Dates: start: 20160627, end: 20160901
  8. VENLAFAXINA [Interacting]
     Active Substance: VENLAFAXINE HYDROCHLORIDE
     Indication: PSYCHOTIC DISORDER
     Route: 048
     Dates: start: 20160627
  9. EUTIROX [Concomitant]
     Active Substance: LEVOTHYROXINE SODIUM
     Route: 048
  10. VENLAFAXINA [Interacting]
     Active Substance: VENLAFAXINE HYDROCHLORIDE
     Indication: PSYCHOTIC DISORDER
     Route: 048
  11. QUETIAPINA [Interacting]
     Active Substance: QUETIAPINE
     Indication: BIPOLAR DISORDER
     Dosage: DOSE: 1-0-1
     Route: 048
     Dates: start: 20160627, end: 20160910
  12. QUETIAPINA [Interacting]
     Active Substance: QUETIAPINE
     Indication: BIPOLAR DISORDER
     Dosage: DOSE:0-0-1
     Route: 048
     Dates: start: 20160910, end: 20160913
  13. QUETIAPINA [Interacting]
     Active Substance: QUETIAPINE
     Indication: PSYCHOTIC DISORDER
     Dosage: DOSE:0-0-1
     Route: 048
     Dates: start: 20160910, end: 20160913
  14. QUETIAPINA [Interacting]
     Active Substance: QUETIAPINE
     Indication: BIPOLAR DISORDER
     Dosage: DOSE: 0-0-1
     Route: 048
     Dates: start: 20160913
  15. QUETIAPINA [Interacting]
     Active Substance: QUETIAPINE
     Indication: PSYCHOTIC DISORDER
     Dosage: DOSE: 1-0-1
     Route: 048
     Dates: start: 20160627, end: 20160910
  16. RISPERDAL [Suspect]
     Active Substance: RISPERIDONE
     Indication: BIPOLAR DISORDER
     Dosage: DOSE: 1/2-1/2-1
     Route: 048
     Dates: start: 20160626, end: 20160627
  17. QUETIAPINA [Interacting]
     Active Substance: QUETIAPINE
     Indication: PSYCHOTIC DISORDER
     Dosage: DOSE: 0-0-1
     Route: 048
     Dates: start: 20160913
  18. RISPERDAL [Suspect]
     Active Substance: RISPERIDONE
     Indication: PSYCHOTIC DISORDER
     Dosage: DOSE: 0-0-1
     Route: 048
     Dates: start: 20160901
  19. VENLAFAXINA [Interacting]
     Active Substance: VENLAFAXINE HYDROCHLORIDE
     Indication: BIPOLAR DISORDER
     Route: 048
     Dates: start: 20160627

REACTIONS (2)
  - Abnormal weight gain [Not Recovered/Not Resolved]
  - Drug interaction [Unknown]

NARRATIVE: CASE EVENT DATE: 201606
